FAERS Safety Report 11847525 (Version 1)
Quarter: 2015Q4

REPORT INFORMATION
  Report Type: Spontaneous
  Country: IT (occurrence: IT)
  Receive Date: 20151217
  Receipt Date: 20151217
  Transmission Date: 20160305
  Serious: Yes (Other)
  Sender: FDA-Public Use
  Company Number: IT-FRESENIUS KABI-FK201506658

PATIENT
  Age: 3 Year
  Sex: Male

DRUGS (3)
  1. MELPHALAN [Suspect]
     Active Substance: MELPHALAN
     Indication: RETINOBLASTOMA
  2. TOPOTECAN [Suspect]
     Active Substance: TOPOTECAN\TOPOTECAN HYDROCHLORIDE
     Indication: RETINOBLASTOMA
     Route: 047
  3. MELPHALAN [Suspect]
     Active Substance: MELPHALAN

REACTIONS (4)
  - Venous thrombosis [Recovered/Resolved]
  - Chorioretinal atrophy [Not Recovered/Not Resolved]
  - Hypotonia [Not Recovered/Not Resolved]
  - Lenticular opacities [Not Recovered/Not Resolved]
